FAERS Safety Report 18744615 (Version 1)
Quarter: 2021Q1

REPORT INFORMATION
  Report Type: Spontaneous
  Country: US (occurrence: US)
  Receive Date: 20210115
  Receipt Date: 20210115
  Transmission Date: 20210419
  Serious: Yes (Other)
  Sender: FDA-Public Use
  Company Number: US-SA-2021SA007815

PATIENT
  Age: 56 Year

DRUGS (1)
  1. SEVELAMER SALT NOT SPECIFIED [Suspect]
     Active Substance: SEVELAMER
     Dosage: UNK

REACTIONS (4)
  - Large intestinal ulcer [Unknown]
  - Crystal deposit intestine [Unknown]
  - Colitis [Unknown]
  - Gastrointestinal haemorrhage [Unknown]
